FAERS Safety Report 10688791 (Version 1)
Quarter: 2015Q1

REPORT INFORMATION
  Report Type: Spontaneous
  Country: US (occurrence: US)
  Receive Date: 20150103
  Receipt Date: 20150103
  Transmission Date: 20150720
  Serious: Yes (Other)
  Sender: FDA-Public Use
  Company Number: US-AUROBINDO-AUR-APL-2014-13770

PATIENT
  Age: 69 Year
  Sex: Female

DRUGS (8)
  1. CLONAZEPAM. [Suspect]
     Active Substance: CLONAZEPAM
     Indication: SEIZURE
     Dosage: 1 MG, DAILY, BED TIME
     Route: 065
  2. VALPROATE [Suspect]
     Active Substance: VALPROATE SODIUM
     Indication: DIZZINESS
     Dosage: UNK
     Route: 065
  3. CLONAZEPAM. [Suspect]
     Active Substance: CLONAZEPAM
     Indication: ANXIETY
     Dosage: 0.5 MG, DAILY, BED TIME
     Route: 065
  4. LAMOTRIGINE. [Suspect]
     Active Substance: LAMOTRIGINE
     Indication: ANGER
  5. LEVETIRACETAM. [Suspect]
     Active Substance: LEVETIRACETAM
     Indication: BALANCE DISORDER
     Dosage: UNK
     Route: 065
  6. CLOBAZAM [Suspect]
     Active Substance: CLOBAZAM
     Dosage: 10 MG, DAILY, BED TIME
     Route: 065
  7. LAMOTRIGINE. [Suspect]
     Active Substance: LAMOTRIGINE
     Indication: MOOD ALTERED
     Dosage: 100 MG, DAILY
     Route: 065
  8. CLOBAZAM [Suspect]
     Active Substance: CLOBAZAM
     Indication: SOMNOLENCE
     Dosage: 5 MG, DAILY, BED TIME
     Route: 065

REACTIONS (11)
  - Anger [Unknown]
  - Confusional state [Recovered/Resolved]
  - Aura [Recovered/Resolved]
  - Anxiety [Recovered/Resolved]
  - Mood altered [Unknown]
  - Somnolence [Recovering/Resolving]
  - Seizure [Recovered/Resolved]
  - Encephalomalacia [Unknown]
  - Fall [Recovered/Resolved]
  - Tremor [Recovered/Resolved]
  - Dizziness [Recovered/Resolved]
